FAERS Safety Report 24372221 (Version 3)
Quarter: 2025Q2

REPORT INFORMATION
  Report Type: Report from Study
  Country: JP (occurrence: JP)
  Receive Date: 20240927
  Receipt Date: 20250624
  Transmission Date: 20250717
  Serious: Yes (Death, Other)
  Sender: SHIONOGI
  Company Number: JP-shionogi-202400000473

PATIENT
  Age: 53 Year
  Sex: Female
  Weight: 44.8 kg

DRUGS (13)
  1. CEFIDEROCOL [Suspect]
     Active Substance: CEFIDEROCOL
     Indication: Enterocolitis bacterial
     Route: 041
     Dates: start: 20240502, end: 20240507
  2. CEFIDEROCOL [Suspect]
     Active Substance: CEFIDEROCOL
     Route: 041
     Dates: start: 20240510, end: 20240517
  3. CEFIDEROCOL [Suspect]
     Active Substance: CEFIDEROCOL
     Route: 041
     Dates: start: 20240523, end: 20240524
  4. CEFIDEROCOL [Suspect]
     Active Substance: CEFIDEROCOL
     Route: 041
     Dates: start: 20240525, end: 20240531
  5. PREDONINE [Suspect]
     Active Substance: PREDNISOLONE
     Indication: Product used for unknown indication
     Route: 065
     Dates: start: 20240513, end: 20240515
  6. DORIPENEM MONOHYDRATE [Concomitant]
     Active Substance: DORIPENEM MONOHYDRATE
     Indication: Enterocolitis bacterial
     Route: 065
     Dates: start: 20240427, end: 20240502
  7. AMIKACIN SULFATE [Concomitant]
     Active Substance: AMIKACIN SULFATE
     Indication: Enterocolitis bacterial
     Route: 065
     Dates: start: 20240423, end: 20240519
  8. AMIKACIN SULFATE [Concomitant]
     Active Substance: AMIKACIN SULFATE
     Route: 065
     Dates: start: 20240524, end: 20240531
  9. TEICOPLANIN [Concomitant]
     Active Substance: TEICOPLANIN
     Indication: Enterocolitis bacterial
     Route: 065
     Dates: start: 20240423, end: 20240506
  10. TEICOPLANIN [Concomitant]
     Active Substance: TEICOPLANIN
     Indication: Product used for unknown indication
     Route: 065
     Dates: start: 20240525, end: 20240529
  11. ENOCITABINE [Concomitant]
     Active Substance: ENOCITABINE
     Indication: Product used for unknown indication
     Route: 065
     Dates: start: 20240513, end: 20240522
  12. IDAMYCIN [Concomitant]
     Active Substance: IDARUBICIN HYDROCHLORIDE
     Indication: Product used for unknown indication
     Route: 065
     Dates: start: 20240513, end: 20240520
  13. FILGRASTIM [Concomitant]
     Active Substance: FILGRASTIM
     Indication: Product used for unknown indication
     Route: 058
     Dates: start: 20240525, end: 20240531

REACTIONS (5)
  - Enterococcal sepsis [Fatal]
  - Shock [Fatal]
  - Pyrexia [Unknown]
  - Ileus paralytic [Unknown]
  - Diarrhoea [Unknown]

NARRATIVE: CASE EVENT DATE: 20240101
